FAERS Safety Report 16411034 (Version 1)
Quarter: 2019Q3

REPORT INFORMATION
  Report Type: Spontaneous
  Country: US (occurrence: US)
  Receive Date: 20190609
  Receipt Date: 20190609
  Transmission Date: 20191004
  Serious: Yes (Life-Threatening)
  Sender: FDA-Public Use
  Company Number: None

PATIENT
  Age: 39 Year
  Sex: Female
  Weight: 63.45 kg

DRUGS (4)
  1. TRAMADOL. [Concomitant]
     Active Substance: TRAMADOL
  2. FLUCTOSON [Concomitant]
  3. SULFAMETH/TRIMETHORIM [Suspect]
     Active Substance: SULFAMETHOXAZOLE\TRIMETHOPRIM
     Indication: HYPERSENSITIVITY
     Dosage: ?          QUANTITY:20 TABLET(S);?
     Route: 048
     Dates: start: 20190523, end: 20190603
  4. GABAPENTIN. [Concomitant]
     Active Substance: GABAPENTIN

REACTIONS (8)
  - Rash [None]
  - Ageusia [None]
  - Lip swelling [None]
  - Headache [None]
  - Oral mucosal blistering [None]
  - Skin exfoliation [None]
  - Tongue discolouration [None]
  - Urticaria [None]

NARRATIVE: CASE EVENT DATE: 20190603
